FAERS Safety Report 8358206-5 (Version None)
Quarter: 2012Q2

REPORT INFORMATION
  Report Type: 
  Country: None (occurrence: None)
  Receive Date: 20120514
  Receipt Date: 20120504
  Transmission Date: 20120825
  Serious: Yes (Hospitalization, Other)
  Sender: FDA-Public Use
  Company Number: BR-GLAXOSMITHKLINE-A0977210A

PATIENT
  Sex: Female
  Weight: 100 kg

DRUGS (2)
  1. ALBUTEROL [Suspect]
     Indication: ASTHMA
     Dates: start: 20020101
  2. LEVOTHYROXINE SODIUM [Concomitant]
     Dosage: 1050MG IN THE MORNING
     Dates: start: 19990101

REACTIONS (4)
  - PRODUCT QUALITY ISSUE [None]
  - ASTHMA [None]
  - OVERDOSE [None]
  - DRUG INEFFECTIVE [None]
